FAERS Safety Report 7940416-X (Version None)
Quarter: 2011Q4

REPORT INFORMATION
  Report Type: 
  Country: None (occurrence: None)
  Receive Date: 20111127
  Receipt Date: 20111123
  Transmission Date: 20120403
  Serious: Yes (Hospitalization)
  Sender: FDA-Public Use
  Company Number: RU-SANOFI-AVENTIS-2011SA076901

PATIENT
  Sex: Female

DRUGS (1)
  1. PLAVIX [Suspect]
     Route: 048
     Dates: start: 20110601, end: 20110601

REACTIONS (2)
  - IN-STENT CORONARY ARTERY RESTENOSIS [None]
  - DRUG ADMINISTRATION ERROR [None]
